FAERS Safety Report 6089113-9 (Version None)
Quarter: 2009Q1

REPORT INFORMATION
  Report Type: 
  Country: None (occurrence: None)
  Receive Date: 20090224
  Receipt Date: 20090212
  Transmission Date: 20090719
  Serious: Yes (Other)
  Sender: FDA-Public Use
  Company Number: DE-ELI_LILLY_AND_COMPANY-DE200902002894

PATIENT
  Age: 8 Year
  Sex: Male

DRUGS (2)
  1. STRATTERA [Suspect]
     Indication: ATTENTION DEFICIT/HYPERACTIVITY DISORDER
     Dosage: 18 MG, DAILY (1/D)
     Route: 048
     Dates: start: 20080701
  2. VALPROATE SODIUM [Concomitant]
     Dosage: 450 MG, UNKNOWN
     Route: 065

REACTIONS (3)
  - AGGRESSION [None]
  - HOMICIDAL IDEATION [None]
  - NERVOUSNESS [None]
